FAERS Safety Report 7152781-4 (Version None)
Quarter: 2010Q4

REPORT INFORMATION
  Report Type: 
  Country: None (occurrence: None)
  Receive Date: 20101213
  Receipt Date: 20101206
  Transmission Date: 20110411
  Serious: Yes (Other)
  Sender: FDA-Public Use
  Company Number: US-AMGEN-USASP2010005949

PATIENT

DRUGS (23)
  1. NPLATE [Suspect]
     Indication: IDIOPATHIC THROMBOCYTOPENIC PURPURA
     Dosage: 8 A?G/KG, QWK
     Route: 058
     Dates: start: 20100618
  2. NPLATE [Suspect]
     Dosage: 8 A?G/KG, QWK
     Route: 058
     Dates: start: 20090618
  3. NPLATE [Suspect]
     Dosage: 8 MG/KG, QWK
     Route: 058
     Dates: start: 20100702
  4. NPLATE [Suspect]
     Dosage: 8 MG/KG, QWK
     Route: 058
     Dates: start: 20100709
  5. NPLATE [Suspect]
     Dosage: 8 A?G/KG, QWK
     Route: 058
     Dates: start: 20100716
  6. NPLATE [Suspect]
     Dosage: 8 A?G/KG, QWK
     Route: 058
     Dates: start: 20100723
  7. NPLATE [Suspect]
     Dosage: 8 A?G/KG, QWK
     Route: 058
     Dates: start: 20100816
  8. NPLATE [Suspect]
     Dosage: 8 A?G/KG, QWK
     Route: 058
     Dates: start: 20100902
  9. NPLATE [Suspect]
     Dosage: 8 A?G/KG, QWK
     Route: 058
     Dates: start: 20100924
  10. NPLATE [Suspect]
     Dosage: 8 A?G/KG, QWK
     Route: 058
     Dates: start: 20100927
  11. NPLATE [Suspect]
     Dosage: 8 MG/KG, QWK
     Route: 058
     Dates: start: 20100930
  12. NPLATE [Suspect]
     Dosage: 600 MG, QWK
     Route: 058
     Dates: start: 20101015
  13. NPLATE [Suspect]
     Dosage: 600 UNK, UNK
     Route: 058
     Dates: start: 20101022
  14. NPLATE [Suspect]
     Dosage: 6 A?G/KG, QWK
     Route: 058
     Dates: start: 20101028
  15. NPLATE [Suspect]
     Dosage: 6 A?G/KG, QWK
     Route: 058
     Dates: start: 20101105
  16. NPLATE [Suspect]
     Dosage: 6 A?G/KG, QWK
     Route: 058
     Dates: start: 20101112
  17. NPLATE [Suspect]
     Dosage: 6 A?G/KG, QWK
     Route: 058
     Dates: start: 20101119
  18. NPLATE [Suspect]
     Dosage: 6 A?G/KG, QWK
     Route: 058
     Dates: start: 20101124
  19. NPLATE [Suspect]
     Dosage: 6 A?G/KG, QWK
     Route: 058
     Dates: start: 20101129
  20. CORTICOSTEROIDS [Concomitant]
     Indication: IDIOPATHIC THROMBOCYTOPENIC PURPURA
     Dosage: UNK
     Dates: start: 19970101
  21. MULTIVITAMIN                       /00097801/ [Concomitant]
  22. LOTREL [Concomitant]
  23. VITAMIN C                          /00008001/ [Concomitant]

REACTIONS (2)
  - BLAST CELLS PRESENT [None]
  - BONE MARROW RETICULIN FIBROSIS [None]
